FAERS Safety Report 9303828 (Version 1)
Quarter: 2013Q2

REPORT INFORMATION
  Report Type: Spontaneous
  Country: GR (occurrence: GR)
  Receive Date: 20130522
  Receipt Date: 20130522
  Transmission Date: 20140414
  Serious: Yes (Other)
  Sender: FDA-Public Use
  Company Number: GR-GLAXOSMITHKLINE-B0893372A

PATIENT
  Age: 38 Year
  Sex: Male

DRUGS (3)
  1. DALACIN C [Suspect]
     Indication: TOOTH ABSCESS
     Route: 065
     Dates: start: 2013, end: 201304
  2. AUGMENTIN [Suspect]
     Indication: TOOTH ABSCESS
     Route: 065
  3. PAIN KILLER [Concomitant]

REACTIONS (5)
  - Abasia [Unknown]
  - Skin reaction [Unknown]
  - Rash [Unknown]
  - Pain [Unknown]
  - Haematocrit decreased [Unknown]
